FAERS Safety Report 4813807-3 (Version None)
Quarter: 2005Q4

REPORT INFORMATION
  Report Type: 
  Country: None (occurrence: None)
  Receive Date: 20051028
  Receipt Date: 20050323
  Transmission Date: 20060501
  Serious: No
  Sender: FDA-Public Use
  Company Number: US-GLAXOSMITHKLINE-A0551014A

PATIENT
  Age: 49 Year
  Sex: Female
  Weight: 104.5 kg

DRUGS (2)
  1. ADVAIR DISKUS 100/50 [Suspect]
     Indication: ASTHMA
     Dosage: 1PUFF TWICE PER DAY
     Route: 055
     Dates: start: 20041001, end: 20041001
  2. NO CONCURRENT MEDICATION [Concomitant]

REACTIONS (1)
  - CHEST PAIN [None]
